FAERS Safety Report 11473175 (Version 3)
Quarter: 2020Q4

REPORT INFORMATION
  Report Type: Spontaneous
  Country: US (occurrence: US)
  Receive Date: 20150908
  Receipt Date: 20201111
  Transmission Date: 20210113
  Serious: No
  Sender: FDA-Public Use
  Company Number: US-JAZZ-2014-US-013524

PATIENT
  Sex: Female

DRUGS (8)
  1. DEXTROAMPHETAMINE [DEXAMFETAMINE] [Suspect]
     Active Substance: DEXTROAMPHETAMINE
     Indication: PRODUCT USED FOR UNKNOWN INDICATION
     Dosage: UNK
  2. XYREM [Suspect]
     Active Substance: SODIUM OXYBATE
     Dosage: 4 G, BID
     Route: 048
     Dates: start: 201410, end: 201504
  3. XYREM [Suspect]
     Active Substance: SODIUM OXYBATE
     Indication: NARCOLEPSY
     Dosage: 2.25 G, BID
     Route: 048
     Dates: start: 200611, end: 2007
  4. KLONOPIN [Suspect]
     Active Substance: CLONAZEPAM
     Indication: PRODUCT USED FOR UNKNOWN INDICATION
     Dosage: UNK
  5. XYREM [Suspect]
     Active Substance: SODIUM OXYBATE
     Dosage: DOSE ADJUSTMENTS
     Route: 048
  6. XYREM [Suspect]
     Active Substance: SODIUM OXYBATE
     Dosage: 4.5 G, BID
     Route: 048
     Dates: start: 201210, end: 2013
  7. XYREM [Suspect]
     Active Substance: SODIUM OXYBATE
     Dosage: 2.25 G, BID
     Route: 048
     Dates: start: 201410
  8. XYREM [Suspect]
     Active Substance: SODIUM OXYBATE
     Dosage: UNK

REACTIONS (6)
  - Sleep-related eating disorder [Unknown]
  - Mitochondrial enzyme deficiency [Not Recovered/Not Resolved]
  - Weight increased [Unknown]
  - Fibromyalgia [Not Recovered/Not Resolved]
  - Somnambulism [Unknown]
  - Insomnia [Unknown]

NARRATIVE: CASE EVENT DATE: 2007
